FAERS Safety Report 11701047 (Version 2)
Quarter: 2016Q2

REPORT INFORMATION
  Report Type: Spontaneous
  Country: CO (occurrence: CO)
  Receive Date: 20151105
  Receipt Date: 20160426
  Transmission Date: 20160815
  Serious: Yes (Hospitalization)
  Sender: FDA-Public Use
  Company Number: CO-JNJFOC-20151100405

PATIENT
  Age: 43 Year
  Sex: Male
  Weight: 90 kg

DRUGS (4)
  1. RISPERDAL CONSTA [Suspect]
     Active Substance: RISPERIDONE
     Indication: SCHIZOPHRENIA
     Route: 030
     Dates: start: 20150528
  2. BIPERIDEN [Concomitant]
     Active Substance: BIPERIDEN
     Route: 065
  3. OLANZAPINE. [Concomitant]
     Active Substance: OLANZAPINE
     Route: 065
  4. VALPROIC ACID. [Concomitant]
     Active Substance: VALPROIC ACID
     Route: 065

REACTIONS (2)
  - Insomnia [Not Recovered/Not Resolved]
  - Aggression [Not Recovered/Not Resolved]

NARRATIVE: CASE EVENT DATE: 20151025
